FAERS Safety Report 5368284-3 (Version None)
Quarter: 2007Q2

REPORT INFORMATION
  Report Type: 
  Country: None (occurrence: None)
  Receive Date: 20070619
  Receipt Date: 20070604
  Transmission Date: 20071010
  Serious: Yes (Hospitalization)
  Sender: FDA-Public Use
  Company Number: 100#08#2007-02052

PATIENT
  Age: 25 Year
  Sex: Male

DRUGS (5)
  1. ISONIAZID [Suspect]
     Indication: PULMONARY TUBERCULOSIS
     Dosage: 30 TABLETS OF 300 MG
  2. RIFAMPIN(RIFAMPICIN) (RIFAMPIN) [Concomitant]
  3. ETHAMBUTOL (ETHAMBUTOL) (ETHAMBUTOL) [Concomitant]
  4. PYRAZINAMIDE [Concomitant]
  5. PYRIDOXINE (PYRIDOXINE) (PYRIDOXINE) [Concomitant]

REACTIONS (13)
  - ANION GAP INCREASED [None]
  - BLOOD BICARBONATE DECREASED [None]
  - BLOOD CREATININE INCREASED [None]
  - BLOOD GLUCOSE INCREASED [None]
  - BLOOD PH DECREASED [None]
  - DRUG DOSE OMISSION [None]
  - HEART RATE INCREASED [None]
  - INTENTIONAL OVERDOSE [None]
  - LIVER FUNCTION TEST ABNORMAL [None]
  - PNEUMONIA ASPIRATION [None]
  - STATUS EPILEPTICUS [None]
  - STRESS [None]
  - SUICIDE ATTEMPT [None]
